FAERS Safety Report 4724299-7 (Version None)
Quarter: 2005Q3

REPORT INFORMATION
  Report Type: 
  Country: None (occurrence: None)
  Receive Date: 20050721
  Receipt Date: 20050721
  Transmission Date: 20060218
  Serious: Yes (Life-Threatening)
  Sender: FDA-Public Use
  Company Number: None

PATIENT
  Age: 88 Year
  Sex: Female

DRUGS (10)
  1. GATIFLOXACIN [Suspect]
     Indication: PNEUMONIA
     Dosage: 200    DAILY   INTRAVENOU
     Route: 042
     Dates: start: 20041122, end: 20041201
  2. GATIFLOXACIN [Suspect]
     Indication: SEPSIS
     Dosage: 200    DAILY   INTRAVENOU
     Route: 042
     Dates: start: 20041122, end: 20041201
  3. ATENOLOL [Concomitant]
  4. EZITIMIBE [Concomitant]
  5. PREVACID [Concomitant]
  6. HYDROCHLOROTHYAZIDE [Concomitant]
  7. ASPIRIN [Concomitant]
  8. CLOPIDOGREL BISULFATE [Concomitant]
  9. NEBULIZERS - ALBUTEROL+ ATROVENT- [Concomitant]
  10. LOVENOX [Concomitant]

REACTIONS (1)
  - HYPOGLYCAEMIA [None]
